FAERS Safety Report 5880650-6 (Version None)
Quarter: 2008Q3

REPORT INFORMATION
  Report Type: 
  Country: None (occurrence: None)
  Receive Date: 20080912
  Receipt Date: 20080616
  Transmission Date: 20090109
  Serious: No
  Sender: FDA-Public Use
  Company Number: US-ABBOTT-08P-163-0455225-00

PATIENT
  Sex: Female
  Weight: 70.37 kg

DRUGS (5)
  1. HUMIRA [Suspect]
     Indication: CROHN'S DISEASE
     Route: 058
     Dates: start: 20080517, end: 20080517
  2. HUMIRA [Suspect]
     Route: 058
     Dates: start: 20080531, end: 20080531
  3. HUMIRA [Suspect]
     Route: 058
  4. PAROXETINE HCL [Concomitant]
     Indication: DRUG USE FOR UNKNOWN INDICATION
  5. ORAL CONTRACEPTIVE [Concomitant]
     Indication: DRUG USE FOR UNKNOWN INDICATION

REACTIONS (8)
  - ARTHRALGIA [None]
  - ASTHENIA [None]
  - ERYTHEMA [None]
  - INFECTION [None]
  - JOINT SWELLING [None]
  - MYALGIA [None]
  - SECRETION DISCHARGE [None]
  - SKIN LACERATION [None]
